FAERS Safety Report 8413378-9 (Version None)
Quarter: 2012Q2

REPORT INFORMATION
  Report Type: 
  Country: None (occurrence: None)
  Receive Date: 20120605
  Receipt Date: 20120531
  Transmission Date: 20120825
  Serious: Yes (Death, Hospitalization)
  Sender: FDA-Public Use
  Company Number: PHHY2012JP023405

PATIENT
  Age: 75 Year
  Sex: Male

DRUGS (5)
  1. FUROSEMIDE [Concomitant]
  2. PREDNISOLONE [Concomitant]
     Dosage: 40 MG, PER DAY
  3. COTRIM [Suspect]
     Indication: ANTIFUNGAL PROPHYLAXIS
  4. PREDNISOLONE [Concomitant]
     Indication: RHEUMATOID ARTHRITIS
     Dosage: 25 MG, PER DAY
     Dates: start: 20090530
  5. ALBUMIN (HUMAN) [Concomitant]

REACTIONS (6)
  - ANAEMIA [None]
  - THROMBOCYTOPENIA [None]
  - PNEUMONIA ASPIRATION [None]
  - PANCREATITIS [None]
  - RESPIRATORY FAILURE [None]
  - TRICHOSPORON INFECTION [None]
